FAERS Safety Report 14128585 (Version 1)
Quarter: 2017Q4

REPORT INFORMATION
  Report Type: Spontaneous
  Country: US (occurrence: US)
  Receive Date: 20171026
  Receipt Date: 20171026
  Transmission Date: 20180321
  Serious: Yes (Hospitalization, Other)
  Sender: FDA-Public Use
  Company Number: None

PATIENT
  Age: 49 Year
  Sex: Female
  Weight: 95.3 kg

DRUGS (1)
  1. OCTAGAM IMMUNE GLOBULIN (HUMAN) [Suspect]
     Active Substance: HUMAN IMMUNOGLOBULIN G
     Indication: HYPOGAMMAGLOBULINAEMIA
     Dosage: ?          OTHER FREQUENCY:MONTHLY;?
     Route: 041
     Dates: start: 20171023

REACTIONS (6)
  - Chills [None]
  - Dyspnoea [None]
  - Hypersensitivity [None]
  - Nausea [None]
  - Chest pain [None]
  - Throat tightness [None]

NARRATIVE: CASE EVENT DATE: 20171023
